FAERS Safety Report 5466270-6 (Version None)
Quarter: 2007Q3

REPORT INFORMATION
  Report Type: 
  Country: None (occurrence: None)
  Receive Date: 20070924
  Receipt Date: 20070912
  Transmission Date: 20080115
  Serious: Yes (Other)
  Sender: FDA-Public Use
  Company Number: CA-PFIZER INC-2007077159

PATIENT
  Sex: Male

DRUGS (1)
  1. RESCRIPTOR [Suspect]
     Route: 048

REACTIONS (2)
  - BONE DISORDER [None]
  - PATHOLOGICAL FRACTURE [None]
